FAERS Safety Report 6173098-0 (Version None)
Quarter: 2009Q2

REPORT INFORMATION
  Report Type: 
  Country: None (occurrence: None)
  Receive Date: 20090430
  Receipt Date: 20090422
  Transmission Date: 20091009
  Serious: Yes (Hospitalization, Other)
  Sender: FDA-Public Use
  Company Number: US-ROCHE-628240

PATIENT
  Sex: Female

DRUGS (3)
  1. BONIVA [Suspect]
     Indication: OSTEOPOROSIS
     Route: 042
     Dates: start: 20081217
  2. ZEGERID [Concomitant]
     Dosage: TAKEN EVERY DAY, DRUG REPORTED AS: ZEGRRD.
     Route: 048
  3. ASCAL [Concomitant]
     Dosage: DRUG REPORTED AS: ASACAL.
     Route: 048

REACTIONS (5)
  - CELLULITIS [None]
  - INFLAMMATION [None]
  - JOINT RANGE OF MOTION DECREASED [None]
  - OEDEMA PERIPHERAL [None]
  - PAIN IN EXTREMITY [None]
